FAERS Safety Report 11570931 (Version 3)
Quarter: 2015Q4

REPORT INFORMATION
  Report Type: Report from Study
  Country: JP (occurrence: JP)
  Receive Date: 20150929
  Receipt Date: 20151102
  Transmission Date: 20160304
  Serious: Yes (Hospitalization, Other)
  Sender: FDA-Public Use
  Company Number: JP-JNJFOC-20150916059

PATIENT
  Age: 41 Year
  Sex: Female
  Weight: 48 kg

DRUGS (54)
  1. XEPLION [Suspect]
     Active Substance: PALIPERIDONE PALMITATE
     Indication: SCHIZOPHRENIA, DISORGANISED TYPE
     Route: 030
     Dates: start: 20150508, end: 20150508
  2. XEPLION [Suspect]
     Active Substance: PALIPERIDONE PALMITATE
     Indication: SCHIZOPHRENIA, DISORGANISED TYPE
     Route: 030
     Dates: start: 20150604, end: 20150604
  3. LEVOTOMIN [Suspect]
     Active Substance: LEVOMEPROMAZINE
     Indication: SCHIZOPHRENIA, DISORGANISED TYPE
     Route: 048
     Dates: start: 20140916, end: 20140926
  4. RISPERDAL [Concomitant]
     Active Substance: RISPERIDONE
     Indication: SCHIZOPHRENIA, DISORGANISED TYPE
     Route: 048
     Dates: start: 20150312, end: 20150318
  5. FLUNITRAZEPAM [Concomitant]
     Active Substance: FLUNITRAZEPAM
     Indication: SCHIZOPHRENIA, DISORGANISED TYPE
     Route: 048
     Dates: end: 20150512
  6. MAGLAX [Concomitant]
     Active Substance: MAGNESIUM OXIDE
     Indication: CONSTIPATION
     Route: 048
     Dates: start: 20150701, end: 20150707
  7. XEPLION [Suspect]
     Active Substance: PALIPERIDONE PALMITATE
     Indication: SCHIZOPHRENIA, DISORGANISED TYPE
     Route: 030
     Dates: start: 20150413, end: 20150413
  8. XEPLION [Suspect]
     Active Substance: PALIPERIDONE PALMITATE
     Indication: SCHIZOPHRENIA, DISORGANISED TYPE
     Route: 030
     Dates: start: 20140813, end: 20140813
  9. LEVOTOMIN [Suspect]
     Active Substance: LEVOMEPROMAZINE
     Indication: SCHIZOPHRENIA, DISORGANISED TYPE
     Route: 048
     Dates: start: 20140927, end: 20141003
  10. LEVOTOMIN [Suspect]
     Active Substance: LEVOMEPROMAZINE
     Indication: SCHIZOPHRENIA, DISORGANISED TYPE
     Route: 048
     Dates: start: 20141204, end: 20141217
  11. MOSAPRIDE CITRATE [Concomitant]
     Active Substance: MOSAPRIDE CITRATE
     Indication: CONSTIPATION
     Route: 048
     Dates: start: 20150708
  12. XEPLION [Suspect]
     Active Substance: PALIPERIDONE PALMITATE
     Indication: SCHIZOPHRENIA, DISORGANISED TYPE
     Route: 030
     Dates: start: 20150829
  13. XEPLION [Suspect]
     Active Substance: PALIPERIDONE PALMITATE
     Indication: SCHIZOPHRENIA, DISORGANISED TYPE
     Route: 030
     Dates: start: 20141204, end: 20141204
  14. XEPLION [Suspect]
     Active Substance: PALIPERIDONE PALMITATE
     Indication: SCHIZOPHRENIA, DISORGANISED TYPE
     Route: 030
     Dates: start: 20150108, end: 20150108
  15. XEPLION [Suspect]
     Active Substance: PALIPERIDONE PALMITATE
     Indication: SCHIZOPHRENIA, DISORGANISED TYPE
     Route: 030
     Dates: start: 20140806, end: 20140806
  16. LEVOTOMIN [Suspect]
     Active Substance: LEVOMEPROMAZINE
     Indication: SCHIZOPHRENIA, DISORGANISED TYPE
     Route: 048
     Dates: start: 20141007, end: 20141119
  17. LEVOTOMIN [Suspect]
     Active Substance: LEVOMEPROMAZINE
     Indication: SCHIZOPHRENIA, DISORGANISED TYPE
     Route: 048
     Dates: start: 20141120, end: 20141206
  18. LEVOTOMIN [Suspect]
     Active Substance: LEVOMEPROMAZINE
     Indication: SCHIZOPHRENIA, DISORGANISED TYPE
     Route: 048
     Dates: start: 20150312, end: 20150421
  19. LEVOTOMIN [Suspect]
     Active Substance: LEVOMEPROMAZINE
     Indication: SCHIZOPHRENIA, DISORGANISED TYPE
     Route: 048
     Dates: start: 20140906, end: 20140915
  20. RISPERDAL [Concomitant]
     Active Substance: RISPERIDONE
     Indication: SCHIZOPHRENIA, DISORGANISED TYPE
     Route: 048
     Dates: start: 20150319, end: 20150421
  21. PANTETHINE [Concomitant]
     Active Substance: PANTETHINE
     Indication: CONSTIPATION
     Route: 048
     Dates: start: 20150610
  22. FLUNITRAZEPAM [Concomitant]
     Active Substance: FLUNITRAZEPAM
     Indication: SCHIZOPHRENIA, DISORGANISED TYPE
     Route: 048
     Dates: start: 20150520
  23. XEPLION [Suspect]
     Active Substance: PALIPERIDONE PALMITATE
     Indication: SCHIZOPHRENIA, DISORGANISED TYPE
     Route: 030
     Dates: start: 20150305, end: 20150305
  24. XEPLION [Suspect]
     Active Substance: PALIPERIDONE PALMITATE
     Indication: SCHIZOPHRENIA, DISORGANISED TYPE
     Route: 030
     Dates: start: 20150730, end: 20150730
  25. INVEGA [Suspect]
     Active Substance: PALIPERIDONE
     Indication: SCHIZOPHRENIA, DISORGANISED TYPE
     Route: 048
     Dates: start: 20140618, end: 20140701
  26. ZYPREXA [Suspect]
     Active Substance: OLANZAPINE
     Indication: SCHIZOPHRENIA, DISORGANISED TYPE
     Route: 048
  27. LEVOTOMIN [Suspect]
     Active Substance: LEVOMEPROMAZINE
     Indication: SCHIZOPHRENIA, DISORGANISED TYPE
     Route: 048
     Dates: start: 20141004, end: 20141006
  28. SENNOSIDE [Concomitant]
     Active Substance: SENNOSIDES
     Indication: CONSTIPATION
     Route: 048
     Dates: end: 20150526
  29. TAKEPRON [Concomitant]
     Active Substance: LANSOPRAZOLE
     Indication: PROPHYLAXIS
     Route: 048
     Dates: start: 20150523, end: 20150526
  30. MAGLAX [Concomitant]
     Active Substance: MAGNESIUM OXIDE
     Indication: CONSTIPATION
     Route: 048
     Dates: start: 20150715
  31. SODIUM PICOSULFATE [Concomitant]
     Active Substance: SODIUM PICOSULFATE
     Indication: CONSTIPATION
     Route: 048
     Dates: start: 20150826
  32. XEPLION [Suspect]
     Active Substance: PALIPERIDONE PALMITATE
     Indication: SCHIZOPHRENIA, DISORGANISED TYPE
     Route: 030
     Dates: start: 20141008, end: 20141008
  33. XEPLION [Suspect]
     Active Substance: PALIPERIDONE PALMITATE
     Indication: SCHIZOPHRENIA, DISORGANISED TYPE
     Route: 030
     Dates: start: 20141105, end: 20141105
  34. XEPLION [Suspect]
     Active Substance: PALIPERIDONE PALMITATE
     Indication: SCHIZOPHRENIA, DISORGANISED TYPE
     Route: 030
     Dates: start: 20150702, end: 20150702
  35. LEVOTOMIN [Suspect]
     Active Substance: LEVOMEPROMAZINE
     Indication: SCHIZOPHRENIA, DISORGANISED TYPE
     Route: 048
     Dates: start: 20150828
  36. LEVOTOMIN [Suspect]
     Active Substance: LEVOMEPROMAZINE
     Indication: SCHIZOPHRENIA, DISORGANISED TYPE
     Route: 048
     Dates: start: 20150814, end: 20150820
  37. FLUNITRAZEPAM [Concomitant]
     Active Substance: FLUNITRAZEPAM
     Indication: SCHIZOPHRENIA, DISORGANISED TYPE
     Route: 048
     Dates: start: 20140808, end: 20140812
  38. MAGLAX [Concomitant]
     Active Substance: MAGNESIUM OXIDE
     Indication: CONSTIPATION
     Route: 048
     Dates: start: 20150708, end: 20150714
  39. XEPLION [Suspect]
     Active Substance: PALIPERIDONE PALMITATE
     Indication: SCHIZOPHRENIA, DISORGANISED TYPE
     Route: 030
     Dates: start: 20140910, end: 20140910
  40. INVEGA [Suspect]
     Active Substance: PALIPERIDONE
     Indication: SCHIZOPHRENIA, DISORGANISED TYPE
     Route: 048
     Dates: start: 20140108, end: 20140617
  41. LEVOTOMIN [Suspect]
     Active Substance: LEVOMEPROMAZINE
     Indication: SCHIZOPHRENIA, DISORGANISED TYPE
     Route: 048
     Dates: start: 20150821, end: 20150827
  42. RISPERDAL [Concomitant]
     Active Substance: RISPERIDONE
     Indication: SCHIZOPHRENIA, DISORGANISED TYPE
     Route: 048
     Dates: start: 20150422
  43. MAGLAX [Concomitant]
     Active Substance: MAGNESIUM OXIDE
     Indication: CONSTIPATION
     Route: 048
     Dates: start: 20150610, end: 20150630
  44. GASCON [Concomitant]
     Active Substance: DIMETHICONE
     Indication: CONSTIPATION
     Route: 048
     Dates: start: 20150708, end: 20150714
  45. LEVOTOMIN [Suspect]
     Active Substance: LEVOMEPROMAZINE
     Indication: SCHIZOPHRENIA, DISORGANISED TYPE
     Route: 048
     Dates: start: 20141218, end: 20150204
  46. LEVOTOMIN [Suspect]
     Active Substance: LEVOMEPROMAZINE
     Indication: SCHIZOPHRENIA, DISORGANISED TYPE
     Route: 048
     Dates: start: 20150205, end: 20150311
  47. LEVOTOMIN [Suspect]
     Active Substance: LEVOMEPROMAZINE
     Indication: SCHIZOPHRENIA, DISORGANISED TYPE
     Route: 048
     Dates: start: 20150422, end: 20150428
  48. FLUNITRAZEPAM [Concomitant]
     Active Substance: FLUNITRAZEPAM
     Indication: SCHIZOPHRENIA, DISORGANISED TYPE
     Route: 048
     Dates: start: 20150513, end: 20150519
  49. BIO-THREE [Concomitant]
     Active Substance: HERBALS
     Indication: PROPHYLAXIS
     Route: 048
     Dates: start: 20150523, end: 20150526
  50. LEVOTOMIN [Suspect]
     Active Substance: LEVOMEPROMAZINE
     Indication: SCHIZOPHRENIA, DISORGANISED TYPE
     Route: 048
     Dates: start: 20150429, end: 20150813
  51. LEVOTOMIN [Suspect]
     Active Substance: LEVOMEPROMAZINE
     Indication: SCHIZOPHRENIA, DISORGANISED TYPE
     Route: 048
     Dates: end: 20140905
  52. PANTETHINE [Concomitant]
     Active Substance: PANTETHINE
     Indication: CONSTIPATION
     Route: 048
     Dates: end: 20150421
  53. LEXOTAN [Concomitant]
     Active Substance: BROMAZEPAM
     Indication: SCHIZOPHRENIA, DISORGANISED TYPE
     Route: 048
     Dates: start: 20150402, end: 20150428
  54. XEPLION [Suspect]
     Active Substance: PALIPERIDONE PALMITATE
     Indication: SCHIZOPHRENIA, DISORGANISED TYPE
     Route: 030
     Dates: start: 20150205, end: 20150205

REACTIONS (3)
  - Suicide attempt [Recovered/Resolved]
  - Schizophrenia [Recovered/Resolved]
  - Ileus [Recovered/Resolved]

NARRATIVE: CASE EVENT DATE: 20150404
